FAERS Safety Report 8419378-7 (Version None)
Quarter: 2012Q2

REPORT INFORMATION
  Report Type: 
  Country: None (occurrence: None)
  Receive Date: 20120607
  Receipt Date: 20120529
  Transmission Date: 20120825
  Serious: Yes (Hospitalization)
  Sender: FDA-Public Use
  Company Number: US-ASTRAZENECA-2012SE25095

PATIENT
  Age: 77 Year
  Sex: Female

DRUGS (14)
  1. HYDROCODONE BITARTRATE + ACETAMINOPHEN [Concomitant]
     Dosage: 5/325 EVERY 4 HRS OR AS NEEDED
  2. PRILOSEC [Suspect]
     Route: 048
  3. HYDROCHLOROTHIAZDE TAB [Concomitant]
  4. METFORMIN HCL [Concomitant]
     Indication: BLOOD GLUCOSE ABNORMAL
  5. GLIPIZIDE [Concomitant]
     Indication: BLOOD GLUCOSE ABNORMAL
  6. TOPROL-XL [Concomitant]
  7. AMLODIPINE BESYLATE [Concomitant]
  8. NEXIUM [Suspect]
     Indication: GASTRIC DISORDER
     Route: 048
     Dates: start: 20020101
  9. UNSPECIFIED [Concomitant]
  10. PLAVIX [Concomitant]
  11. ASPIRIN [Concomitant]
  12. AMBIEN [Concomitant]
     Indication: SLEEP DISORDER
  13. ALLOPURINOL [Concomitant]
     Indication: BLOOD CHOLESTEROL ABNORMAL
  14. CELEXA [Concomitant]

REACTIONS (6)
  - UTERINE PROLAPSE [None]
  - GASTRIC DISORDER [None]
  - DYSURIA [None]
  - LIP PAIN [None]
  - MYOCARDIAL INFARCTION [None]
  - DRUG INEFFECTIVE [None]
